FAERS Safety Report 18348291 (Version 1)
Quarter: 2020Q4

REPORT INFORMATION
  Report Type: Spontaneous
  Country: US (occurrence: US)
  Receive Date: 20201006
  Receipt Date: 20201006
  Transmission Date: 20210114
  Serious: Yes (Death, Other)
  Sender: FDA-Public Use
  Company Number: US-BIOVITRUM-2020US5202

PATIENT
  Age: 17 Year
  Sex: Male

DRUGS (3)
  1. STEROIDS [Concomitant]
     Active Substance: UNSPECIFIED INGREDIENT
  2. ANAKINRA [Suspect]
     Active Substance: ANAKINRA
     Indication: HAEMOPHAGOCYTIC LYMPHOHISTIOCYTOSIS
     Dosage: PER KILOGRAM
     Route: 042
  3. ANAKINRA [Suspect]
     Active Substance: ANAKINRA
     Indication: HAEMOPHAGOCYTIC LYMPHOHISTIOCYTOSIS

REACTIONS (8)
  - Respiratory failure [Unknown]
  - Cardio-respiratory arrest [Fatal]
  - Cardiac arrest [Unknown]
  - Acute respiratory distress syndrome [Unknown]
  - Off label use [Unknown]
  - Respiratory rate increased [Unknown]
  - Hypoxia [Unknown]
  - Traumatic lung injury [Unknown]
